APPROVED DRUG PRODUCT: OMNIPAQUE 12
Active Ingredient: IOHEXOL
Strength: 2.6%
Dosage Form/Route: SOLUTION;ORAL
Application: N018956 | Product #009
Applicant: GE HEALTHCARE
Approved: Apr 17, 2018 | RLD: Yes | RS: Yes | Type: RX